FAERS Safety Report 11029347 (Version 1)
Quarter: 2015Q2

REPORT INFORMATION
  Report Type: Spontaneous
  Country: US (occurrence: US)
  Receive Date: 20150415
  Receipt Date: 20150415
  Transmission Date: 20150821
  Serious: No
  Sender: FDA-Public Use
  Company Number: US-EMD SERONO-8019812

PATIENT
  Sex: Female

DRUGS (1)
  1. REBIF [Suspect]
     Active Substance: INTERFERON BETA-1A
     Indication: PRODUCT USED FOR UNKNOWN INDICATION
     Route: 058
     Dates: start: 201402

REACTIONS (6)
  - Dysthymic disorder [Unknown]
  - Gait disturbance [Not Recovered/Not Resolved]
  - Hyperlipidaemia [Unknown]
  - Migraine [Unknown]
  - Balance disorder [Not Recovered/Not Resolved]
  - Hypothyroidism [Unknown]
